FAERS Safety Report 24825067 (Version 1)
Quarter: 2025Q1

REPORT INFORMATION
  Report Type: Spontaneous
  Country: US (occurrence: None)
  Receive Date: 20250108
  Receipt Date: 20250108
  Transmission Date: 20250408
  Serious: No
  Sender: FDA-CTU
  Company Number: None

PATIENT
  Age: 76 Year
  Sex: Male
  Weight: 82.35 kg

DRUGS (5)
  1. ZILUCOPLAN [Suspect]
     Active Substance: ZILUCOPLAN
     Indication: Myasthenia gravis
     Dosage: NEEDLE INJECTION ONCE PER DAY IN MORNING?
     Route: 050
     Dates: start: 20210310
  2. PREDNISONE [Concomitant]
     Active Substance: PREDNISONE
  3. PYRIDOSTIGMINE BROMIDE [Concomitant]
     Active Substance: PYRIDOSTIGMINE BROMIDE
  4. ASPIRIN [Concomitant]
     Active Substance: ASPIRIN
  5. adult 50+ multivitamin [Concomitant]

REACTIONS (8)
  - Upper respiratory tract infection [None]
  - Inguinal hernia [None]
  - Renal cyst [None]
  - Pancreatic cyst [None]
  - Pancreatitis [None]
  - Epistaxis [None]
  - Amylase decreased [None]
  - Gait disturbance [None]

NARRATIVE: CASE EVENT DATE: 20240503
